FAERS Safety Report 5984224-8 (Version None)
Quarter: 2008Q4

REPORT INFORMATION
  Report Type: 
  Country: None (occurrence: None)
  Receive Date: 20081208
  Receipt Date: 20081127
  Transmission Date: 20090506
  Serious: Yes (Other)
  Sender: FDA-Public Use
  Company Number: DE-ASTRAZENECA-2008PK02602

PATIENT
  Age: 82 Year
  Sex: Male
  Weight: 85 kg

DRUGS (4)
  1. SYMBICORT [Suspect]
     Indication: CHRONIC OBSTRUCTIVE PULMONARY DISEASE
     Dosage: 160/4.5 UG TWO INHALATIONS TWICE DAILY
     Route: 055
     Dates: start: 20050318, end: 20050421
  2. BERODUAL [Concomitant]
     Dosage: TWO INHALATIONS TWICE DAILY
  3. FORADIL [Concomitant]
     Dosage: TWO INHALATIONS TWICE DAILY
  4. VENTOLAIR [Concomitant]
     Dosage: TWO INHALATIONS TWICE DAILY

REACTIONS (1)
  - ARRHYTHMIA [None]
